FAERS Safety Report 14155150 (Version 1)
Quarter: 2017Q4

REPORT INFORMATION
  Report Type: Spontaneous
  Country: GR (occurrence: GR)
  Receive Date: 20171103
  Receipt Date: 20171103
  Transmission Date: 20180321
  Serious: Yes (Hospitalization, Other)
  Sender: FDA-Public Use
  Company Number: GR-009507513-1706GRC011155

PATIENT
  Age: 54 Year
  Sex: Female

DRUGS (3)
  1. TRILEPTAL [Concomitant]
     Active Substance: OXCARBAZEPINE
     Dosage: 1 TABLET IN THE MORNING AND 1.5 TABLET EVERY NIGHT
     Route: 048
     Dates: start: 2012
  2. INEGY [Suspect]
     Active Substance: EZETIMIBE\SIMVASTATIN
     Indication: BLOOD CHOLESTEROL INCREASED
     Dosage: 1 TABLET DAILY AT NIGHT
     Route: 048
     Dates: start: 2016, end: 20170928
  3. LEVETIRACETAM. [Concomitant]
     Active Substance: LEVETIRACETAM
     Dosage: UNK
     Dates: start: 2014, end: 201704

REACTIONS (7)
  - Chest pain [Unknown]
  - Rash [Recovering/Resolving]
  - Chest wall cyst [Unknown]
  - Eczema [Recovered/Resolved]
  - Drug-induced liver injury [Unknown]
  - Erythema [Not Recovered/Not Resolved]
  - Infected cyst [Unknown]

NARRATIVE: CASE EVENT DATE: 2016
